FAERS Safety Report 24789681 (Version 1)
Quarter: 2024Q4

REPORT INFORMATION
  Report Type: Report from Study
  Country: US (occurrence: US)
  Receive Date: 20241230
  Receipt Date: 20241230
  Transmission Date: 20250115
  Serious: Yes (Hospitalization)
  Sender: PFIZER
  Company Number: US-PFIZER INC-202400331582

PATIENT
  Age: 72 Year
  Sex: Male

DRUGS (1)
  1. VYNDAQEL [Suspect]
     Active Substance: TAFAMIDIS MEGLUMINE
     Indication: Cardiac amyloidosis
     Dosage: TAKE 4 CAPSULES BY MOUTH EVERY DAY
     Route: 048

REACTIONS (3)
  - Product dose omission issue [Unknown]
  - Myocardial infarction [Unknown]
  - Muscle spasms [Unknown]
